FAERS Safety Report 7936336-7 (Version None)
Quarter: 2011Q4

REPORT INFORMATION
  Report Type: 
  Country: None (occurrence: None)
  Receive Date: 20111121
  Receipt Date: 20111107
  Transmission Date: 20120403
  Serious: Yes (Other)
  Sender: FDA-Public Use
  Company Number: 2011MA016249

PATIENT
  Age: 49 Year
  Sex: Male

DRUGS (6)
  1. FLUOXETINE [Concomitant]
  2. BUSPIRONE [Concomitant]
  3. PROPRANOLOL [Concomitant]
  4. RISPERIDONE [Suspect]
     Indication: AFFECTIVE DISORDER
     Dosage: 1 MG, BID, PO
     Route: 048
     Dates: start: 20110901, end: 20110930
  5. ZOPICLONE [Concomitant]
  6. DIAZEPAM [Concomitant]

REACTIONS (1)
  - NOCTURIA [None]
